FAERS Safety Report 13097688 (Version 1)
Quarter: 2017Q1

REPORT INFORMATION
  Report Type: Spontaneous
  Country: US (occurrence: US)
  Receive Date: 20170109
  Receipt Date: 20170109
  Transmission Date: 20170428
  Serious: No
  Sender: FDA-Public Use
  Company Number: US-ABBVIE-16K-163-1790210-00

PATIENT
  Age: 72 Year
  Sex: Male

DRUGS (1)
  1. DUOPA [Suspect]
     Active Substance: CARBIDOPA\LEVODOPA
     Indication: PARKINSON^S DISEASE
     Route: 050
     Dates: start: 20161102

REACTIONS (7)
  - Gastric infection [Unknown]
  - Gait disturbance [Not Recovered/Not Resolved]
  - Tremor [Recovered/Resolved]
  - Dysstasia [Not Recovered/Not Resolved]
  - Crying [Recovered/Resolved]
  - Panic attack [Recovered/Resolved]
  - Stoma site infection [Unknown]

NARRATIVE: CASE EVENT DATE: 201611
